FAERS Safety Report 6007891-1 (Version None)
Quarter: 2008Q4

REPORT INFORMATION
  Report Type: 
  Country: None (occurrence: None)
  Receive Date: 20081217
  Receipt Date: 20080709
  Transmission Date: 20090506
  Serious: No
  Sender: FDA-Public Use
  Company Number: US-ASTRAZENECA-2008UW13803

PATIENT
  Age: 77 Year
  Sex: Female

DRUGS (7)
  1. CRESTOR [Suspect]
     Indication: HYPERCHOLESTEROLAEMIA
     Dosage: 20 MG
     Route: 048
     Dates: start: 20080601
  2. ATENOLOL [Concomitant]
     Route: 048
  3. BENICAR HCT [Concomitant]
  4. ARIMIDEX [Concomitant]
     Route: 048
  5. ALEVE [Concomitant]
  6. DARVOCET [Concomitant]
  7. VICODIN [Concomitant]

REACTIONS (1)
  - PAIN IN EXTREMITY [None]
